FAERS Safety Report 7277112-0 (Version None)
Quarter: 2011Q1

REPORT INFORMATION
  Report Type: 
  Country: None (occurrence: None)
  Receive Date: 20110202
  Receipt Date: 20110202
  Transmission Date: 20110831
  Serious: Yes (Other)
  Sender: FDA-Public Use
  Company Number: None

PATIENT
  Age: 68 Year
  Sex: Female
  Weight: 56.246 kg

DRUGS (2)
  1. AZOR [Suspect]
     Dosage: 1 TABLET DAILY
     Dates: start: 20091101, end: 20110101
  2. AZOR [Suspect]
     Dosage: 1 TABLET DAILY
     Dates: start: 20090101, end: 20090901

REACTIONS (5)
  - HYPERHIDROSIS [None]
  - HYPOAESTHESIA [None]
  - DIZZINESS [None]
  - ALOPECIA [None]
  - BLOOD PRESSURE INADEQUATELY CONTROLLED [None]
